FAERS Safety Report 25887154 (Version 1)
Quarter: 2025Q4

REPORT INFORMATION
  Report Type: Spontaneous
  Country: EU (occurrence: EU)
  Receive Date: 20251006
  Receipt Date: 20251006
  Transmission Date: 20260118
  Serious: Yes (Other)
  Sender: NOVARTIS
  Company Number: EU-002147023-NVSC2025LV151848

PATIENT
  Age: 48 Year
  Sex: Male

DRUGS (2)
  1. ASCIMINIB [Suspect]
     Active Substance: ASCIMINIB
     Indication: Chronic myeloid leukaemia
     Dosage: 40 MG, BID
     Route: 048
     Dates: start: 20240101
  2. ASCIMINIB [Suspect]
     Active Substance: ASCIMINIB
     Dosage: 60 MG (40 MG IN THE MORNING +20 MG 1X IN THE EVENING.)
     Route: 065

REACTIONS (8)
  - Multiple fractures [Unknown]
  - Asthenia [Unknown]
  - Chest pain [Unknown]
  - Hyperhidrosis [Unknown]
  - Decreased appetite [Unknown]
  - Leukocytosis [Unknown]
  - Abdominal pain [Unknown]
  - Weight decreased [Unknown]
